FAERS Safety Report 5297914-X (Version None)
Quarter: 2007Q2

REPORT INFORMATION
  Report Type: 
  Country: None (occurrence: None)
  Receive Date: 20070416
  Receipt Date: 20070405
  Transmission Date: 20071010
  Serious: Yes (Other)
  Sender: FDA-Public Use
  Company Number: US-GLAXOSMITHKLINE-A0646110A

PATIENT
  Age: 74 Year
  Sex: Female

DRUGS (14)
  1. ADVAIR DISKUS 100/50 [Suspect]
     Indication: CHRONIC OBSTRUCTIVE PULMONARY DISEASE
     Dosage: 1PUFF TWICE PER DAY
     Route: 055
     Dates: start: 20060301
  2. COMBIVENT [Concomitant]
  3. OXYGEN [Concomitant]
  4. NORVASC [Concomitant]
  5. CLARINEX [Concomitant]
  6. HYDRALAZINE HCL [Concomitant]
  7. MOBIC [Concomitant]
  8. TOPROL-XL [Concomitant]
  9. CALTRATE [Concomitant]
  10. ASPIRIN [Concomitant]
  11. NEXIUM [Concomitant]
  12. PLAQUENIL [Concomitant]
  13. IMDUR [Concomitant]
  14. NITROLINGUAL [Concomitant]

REACTIONS (1)
  - DEVICE FAILURE [None]
